FAERS Safety Report 8874134 (Version 1)
Quarter: 2012Q4

REPORT INFORMATION
  Report Type: 
  Country: US (occurrence: US)
  Receive Date: 20121023
  Receipt Date: 20121023
  Transmission Date: 20130627
  Serious: No
  Sender: FDA-Public Use
  Company Number: US-009507513-1210USA009364

PATIENT
  Age: 15 Year
  Sex: Female
  Weight: 54.42 kg

DRUGS (4)
  1. NEXPLANON [Suspect]
     Indication: CONTRACEPTION
     Dosage: 1 DF, UNK
     Route: 059
     Dates: start: 20121015, end: 20121015
  2. NEXPLANON [Suspect]
     Dosage: 1 DF, UNK
     Route: 059
     Dates: start: 20121015
  3. LO SEASONIQUE [Concomitant]
  4. MOTRIN [Concomitant]

REACTIONS (2)
  - Device difficult to use [Unknown]
  - Product quality issue [Unknown]
